FAERS Safety Report 7093143-8 (Version None)
Quarter: 2010Q4

REPORT INFORMATION
  Report Type: 
  Country: None (occurrence: None)
  Receive Date: 20101110
  Receipt Date: 20090515
  Transmission Date: 20110411
  Serious: Yes (Hospitalization)
  Sender: FDA-Public Use
  Company Number: US-KINGPHARMUSA00001-K200900633

PATIENT

DRUGS (1)
  1. THROMBIN-JMI [Suspect]
     Dosage: UNK
     Dates: start: 20090101, end: 20090101

REACTIONS (2)
  - COAGULOPATHY [None]
  - HAEMORRHAGE [None]
